FAERS Safety Report 4812005-7 (Version None)
Quarter: 2005Q4

REPORT INFORMATION
  Report Type: 
  Country: None (occurrence: None)
  Receive Date: 20051027
  Receipt Date: 20051027
  Transmission Date: 20060501
  Serious: Yes (Hospitalization)
  Sender: FDA-Public Use
  Company Number: None

PATIENT
  Age: 64 Year
  Sex: Female
  Weight: 86 kg

DRUGS (6)
  1. TARCEVA [Suspect]
     Indication: LUNG NEOPLASM MALIGNANT
     Dosage: 150MG
     Dates: start: 20050127, end: 20050131
  2. PRAVACHOL [Concomitant]
  3. ASPIRIN [Concomitant]
  4. ZYPREXA [Concomitant]
  5. ATENOLOL [Concomitant]
  6. FOSAMAX [Concomitant]

REACTIONS (3)
  - DYSPNOEA EXERTIONAL [None]
  - NODULE [None]
  - PLEURAL EFFUSION [None]
